FAERS Safety Report 26162565 (Version 1)
Quarter: 2025Q4

REPORT INFORMATION
  Report Type: Spontaneous
  Country: GB (occurrence: GB)
  Receive Date: 20251216
  Receipt Date: 20251216
  Transmission Date: 20260118
  Serious: Yes (Other)
  Sender: ORION PHARMA
  Company Number: None

PATIENT
  Age: 51 Year
  Sex: Male

DRUGS (23)
  1. METHOTREXATE [Suspect]
     Active Substance: METHOTREXATE
     Indication: Product used for unknown indication
  2. FELODIPINE [Concomitant]
     Active Substance: FELODIPINE
  3. FOLIC ACID [Concomitant]
     Active Substance: FOLIC ACID
  4. PIOGLITAZONE [Concomitant]
     Active Substance: PIOGLITAZONE
  5. ENOXAPARIN [Concomitant]
     Active Substance: ENOXAPARIN
  6. CANAGLIFLOZIN [Concomitant]
     Active Substance: CANAGLIFLOZIN
  7. HUMALOG KWIKPEN [Concomitant]
     Active Substance: INSULIN LISPRO
     Dosage: 200UNITS/ML
  8. SITAGLIPTIN [Concomitant]
     Active Substance: SITAGLIPTIN
  9. SAXAGLIPTIN [Concomitant]
     Active Substance: SAXAGLIPTIN
  10. VITAMINS [Concomitant]
     Active Substance: VITAMINS
  11. PANTOPRAZOLE [Concomitant]
     Active Substance: PANTOPRAZOLE
  12. LANSOPRAZOLE [Concomitant]
     Active Substance: LANSOPRAZOLE
  13. Vildagliptin-Metformin [Concomitant]
  14. RAMIPRIL [Concomitant]
     Active Substance: RAMIPRIL
  15. LINAGLIPTIN [Concomitant]
     Active Substance: LINAGLIPTIN
  16. TOUJEO [Concomitant]
     Active Substance: INSULIN GLARGINE
     Dosage: 300UNITS/ML, 3ML PRE-FILLED DOUBLESTAR PENS
  17. ACIDEX ADVANCE [Concomitant]
  18. METFORMIN [Concomitant]
     Active Substance: METFORMIN HYDROCHLORIDE
  19. ROSIGLITAZONE [Concomitant]
     Active Substance: ROSIGLITAZONE
  20. EMPAGLIFLOZIN [Concomitant]
     Active Substance: EMPAGLIFLOZIN
  21. DAPAGLIFLOZIN [Concomitant]
     Active Substance: DAPAGLIFLOZIN
  22. ATORVASTATIN [Concomitant]
     Active Substance: ATORVASTATIN
  23. ALOGLIPTIN [Concomitant]
     Active Substance: ALOGLIPTIN

REACTIONS (4)
  - Renal impairment [Unknown]
  - Acute kidney injury [Unknown]
  - Abdominal discomfort [Unknown]
  - Pain [Unknown]
